FAERS Safety Report 5424672-8 (Version None)
Quarter: 2007Q3

REPORT INFORMATION
  Report Type: 
  Country: None (occurrence: None)
  Receive Date: 20070822
  Receipt Date: 20070822
  Transmission Date: 20080115
  Serious: Yes (Other)
  Sender: FDA-Public Use
  Company Number: None

PATIENT
  Sex: Male
  Weight: 178 kg

DRUGS (8)
  1. XOLAIR [Suspect]
     Indication: ASTHMA
     Dosage: 375MG Q2WEEK SQ
     Route: 058
     Dates: start: 20070619
  2. PREVACID [Concomitant]
  3. ALLEGRA [Concomitant]
  4. SINGULAIR [Concomitant]
  5. FLOVENT [Concomitant]
  6. PULMICORT [Concomitant]
  7. ZYRTEC [Concomitant]
  8. ALBUTEROL [Concomitant]

REACTIONS (2)
  - RASH PRURITIC [None]
  - SKIN ULCER [None]
